FAERS Safety Report 24230935 (Version 2)
Quarter: 2024Q3

REPORT INFORMATION
  Report Type: Spontaneous
  Country: US (occurrence: US)
  Receive Date: 20240821
  Receipt Date: 20240829
  Transmission Date: 20241016
  Serious: No
  Sender: SANOFI AVENTIS
  Company Number: US-SA-SAC20240805000771

PATIENT
  Age: 72 Year
  Sex: Female

DRUGS (9)
  1. DUPIXENT [Suspect]
     Active Substance: DUPILUMAB
     Indication: Dermatitis atopic
     Dosage: 600 MG, 1X
     Route: 058
  2. DUPIXENT [Suspect]
     Active Substance: DUPILUMAB
     Dosage: 300 MG, QOW
     Route: 058
     Dates: start: 20240729
  3. ALBUTEROL SULFATE [Concomitant]
     Active Substance: ALBUTEROL SULFATE
     Dosage: UNK
  4. VITAMIN D NOS [Concomitant]
     Active Substance: CHOLECALCIFEROL\ERGOCALCIFEROL
     Dosage: UNK
  5. ATORVASTATIN [Concomitant]
     Active Substance: ATORVASTATIN
     Dosage: UNK
  6. MULTIVITAMIN [ASCORBIC ACID;COLECALCIFEROL;NICOTINAMIDE;PYRIDOXINE HYD [Concomitant]
     Dosage: UNK
  7. HAIR SKIN NAILS [Concomitant]
  8. VITAMINS NOS [Concomitant]
     Active Substance: VITAMINS
  9. ARNICARE [Concomitant]
     Active Substance: HOMEOPATHICS

REACTIONS (3)
  - Skin discolouration [Not Recovered/Not Resolved]
  - Scar [Not Recovered/Not Resolved]
  - Endodontic procedure [Unknown]

NARRATIVE: CASE EVENT DATE: 20240101
